FAERS Safety Report 9341779 (Version 1)
Quarter: 2013Q2

REPORT INFORMATION
  Report Type: Spontaneous
  Country: US (occurrence: None)
  Receive Date: 20130606
  Receipt Date: 20130606
  Transmission Date: 20140414
  Serious: Yes (Hospitalization)
  Sender: FDA-Public Use
  Company Number: SYM-2013-04412

PATIENT
  Age: 51 Year
  Sex: Male

DRUGS (1)
  1. BUPROPION [Suspect]
     Indication: PRODUCT USED FOR UNKNOWN INDICATION

REACTIONS (10)
  - Drug abuse [None]
  - Hallucination [None]
  - Tremor [None]
  - Muscle spasms [None]
  - Incorrect route of drug administration [None]
  - Tachycardia [None]
  - Mydriasis [None]
  - Hyperreflexia [None]
  - Myoclonus [None]
  - Hyperhidrosis [None]
